FAERS Safety Report 14551267 (Version 1)
Quarter: 2018Q1

REPORT INFORMATION
  Report Type: Spontaneous
  Country: US (occurrence: US)
  Receive Date: 20180220
  Receipt Date: 20180220
  Transmission Date: 20180509
  Serious: No
  Sender: FDA-Public Use
  Company Number: US-TEVA-724458ACC

PATIENT
  Sex: Female

DRUGS (1)
  1. TAMOXITAB [Suspect]
     Active Substance: TAMOXIFEN CITRATE
     Dates: start: 201608

REACTIONS (2)
  - Gastrointestinal disorder [Unknown]
  - Nausea [Unknown]
